FAERS Safety Report 6851235-X (Version None)
Quarter: 2010Q3

REPORT INFORMATION
  Report Type: 
  Country: None (occurrence: None)
  Receive Date: 20100717
  Receipt Date: 20080114
  Transmission Date: 20110219
  Serious: No
  Sender: FDA-Public Use
  Company Number: US-PFIZER INC-2008005089

PATIENT
  Age: 44 Year
  Sex: Female
  Weight: 67.272 kg

DRUGS (3)
  1. CHANTIX [Suspect]
     Indication: SMOKING CESSATION THERAPY
     Route: 048
     Dates: start: 20080101
  2. FENTANYL [Concomitant]
  3. DILAUDID [Concomitant]

REACTIONS (3)
  - CONSTIPATION [None]
  - MALAISE [None]
  - NAUSEA [None]
